FAERS Safety Report 21221587 (Version 1)
Quarter: 2022Q3

REPORT INFORMATION
  Report Type: Spontaneous
  Country: RU (occurrence: RU)
  Receive Date: 20220817
  Receipt Date: 20220817
  Transmission Date: 20221026
  Serious: Yes (Other)
  Sender: FDA-Public Use
  Company Number: RU-BAYER-2022P011346

PATIENT

DRUGS (5)
  1. EYLEA [Suspect]
     Active Substance: AFLIBERCEPT
     Indication: Macular degeneration
     Dosage: UNK, FOUTH INJECTIONS; SOLUTION FOR INJECTION
     Route: 031
  2. EYLEA [Suspect]
     Active Substance: AFLIBERCEPT
     Dosage: UNK, EXCESSIVE INCREASE IN THE INTER-INJECTION INTERVAL (UP TO 3.5 MONTHS); SOLUTION FOR INJECTION
     Route: 031
  3. EYLEA [Suspect]
     Active Substance: AFLIBERCEPT
     Dosage: UNK, PATIENT RECEIVED 7 INJECTIONS; SOLUTION FOR INJECTION
     Route: 031
     Dates: start: 20161003, end: 20171003
  4. EYLEA [Suspect]
     Active Substance: AFLIBERCEPT
     Dosage: UNK, FIVE INJECTIONS; SOLUTION FOR INJECTION
     Route: 031
     Dates: start: 20171003, end: 20181203
  5. EYLEA [Suspect]
     Active Substance: AFLIBERCEPT
     Dosage: UNK, FOUR INJECTIONS; SOLUTION FOR INJECTION
     Route: 031
     Dates: start: 20181003, end: 20191003

REACTIONS (2)
  - Blindness [Unknown]
  - Off label use [Unknown]
